FAERS Safety Report 9379345 (Version 4)
Quarter: 2013Q3

REPORT INFORMATION
  Report Type: Spontaneous
  Country: FR (occurrence: FR)
  Receive Date: 20130702
  Receipt Date: 20130905
  Transmission Date: 20140515
  Serious: Yes (Hospitalization, Other)
  Sender: FDA-Public Use
  Company Number: FR-PFIZER INC-2013192222

PATIENT
  Age: 37 Year
  Sex: Female

DRUGS (4)
  1. ADVIL [Suspect]
     Indication: ANALGESIC THERAPY
     Dosage: 6 TO 8 TABLETS, ONCE
     Route: 048
     Dates: start: 20130416, end: 20130430
  2. IXPRIM [Suspect]
     Indication: ANALGESIC THERAPY
     Dosage: 4 DF, 1X/DAY
     Route: 048
     Dates: start: 20130416, end: 20130430
  3. DOLIPRANE [Suspect]
     Indication: ANALGESIC THERAPY
     Dosage: 4 TO 6 G DAILY
     Route: 048
     Dates: start: 20130416, end: 20130430
  4. DOLIPRANE [Suspect]
     Dosage: 8 G, SINGLE
     Route: 048

REACTIONS (5)
  - Haematemesis [Recovered/Resolved]
  - Liver injury [Unknown]
  - Nausea [Unknown]
  - Vomiting [Recovered/Resolved]
  - Diarrhoea [Recovered/Resolved]
